FAERS Safety Report 17607530 (Version 3)
Quarter: 2021Q1

REPORT INFORMATION
  Report Type: Spontaneous
  Country: US (occurrence: US)
  Receive Date: 20200331
  Receipt Date: 20210114
  Transmission Date: 20210419
  Serious: No
  Sender: FDA-Public Use
  Company Number: US-ELI_LILLY_AND_COMPANY-US202003002476

PATIENT
  Age: 72 Year
  Sex: Female

DRUGS (2)
  1. BASAGLAR [Suspect]
     Active Substance: INSULIN GLARGINE
     Dosage: 35 U, DAILY
     Route: 065
  2. BASAGLAR [Suspect]
     Active Substance: INSULIN GLARGINE
     Indication: PRODUCT USED FOR UNKNOWN INDICATION
     Dosage: 70 U, UNKNOWN
     Route: 058

REACTIONS (10)
  - Nervousness [Not Recovered/Not Resolved]
  - Nervousness [Recovered/Resolved]
  - Headache [Unknown]
  - Stress [Unknown]
  - Blood glucose increased [Recovered/Resolved]
  - Anxiety [Unknown]
  - Tremor [Recovered/Resolved]
  - Hypertension [Unknown]
  - Blood glucose fluctuation [Not Recovered/Not Resolved]
  - Visual impairment [Unknown]

NARRATIVE: CASE EVENT DATE: 20200304
